FAERS Safety Report 16939312 (Version 1)
Quarter: 2019Q4

REPORT INFORMATION
  Report Type: Spontaneous
  Country: US (occurrence: US)
  Receive Date: 20191021
  Receipt Date: 20191021
  Transmission Date: 20200122
  Serious: No
  Sender: FDA-Public Use
  Company Number: US-TEVA-2019-US-1126065

PATIENT
  Age: 60 Year
  Sex: Female

DRUGS (1)
  1. LORAZEPAM. [Suspect]
     Active Substance: LORAZEPAM
     Dosage: 2 MG
     Route: 065

REACTIONS (3)
  - Insomnia [Unknown]
  - Decreased appetite [Unknown]
  - Headache [Unknown]
